FAERS Safety Report 10233167 (Version 2)
Quarter: 2014Q3

REPORT INFORMATION
  Report Type: Spontaneous
  Country: GB (occurrence: GB)
  Receive Date: 20140612
  Receipt Date: 20140708
  Transmission Date: 20150326
  Serious: Yes (Life-Threatening, Other)
  Sender: FDA-Public Use
  Company Number: GB-MYLANLABS-2014S1012918

PATIENT
  Age: 30 Year
  Sex: Female
  Weight: 160 kg

DRUGS (3)
  1. ARIPIPRAZOLE [Concomitant]
     Active Substance: ARIPIPRAZOLE
     Indication: SCHIZOPHRENIA
     Route: 048
  2. DEPIXOL [Concomitant]
     Active Substance: FLUPENTIXOL DECANOATE
     Dosage: UNK
     Route: 030
  3. VENLAFAXINE HYDROCHLORIDE. [Suspect]
     Active Substance: VENLAFAXINE HYDROCHLORIDE
     Indication: DEPRESSION
     Dosage: 150 MG, 1X/DAY
     Route: 048

REACTIONS (4)
  - Suicidal ideation [Recovered/Resolved]
  - Drug level below therapeutic [Recovered/Resolved]
  - Depression [Recovered/Resolved]
  - Psychotic disorder [Recovered/Resolved]

NARRATIVE: CASE EVENT DATE: 20140424
